FAERS Safety Report 6723578-1 (Version None)
Quarter: 2010Q2

REPORT INFORMATION
  Report Type: 
  Country: None (occurrence: None)
  Receive Date: 20100513
  Receipt Date: 20100305
  Transmission Date: 20101027
  Serious: Yes (Hospitalization)
  Sender: FDA-Public Use
  Company Number: DE-ROCHE-687965

PATIENT
  Age: 74 Year
  Sex: Female
  Weight: 75 kg

DRUGS (12)
  1. LARIAM [Suspect]
     Indication: LEUKOENCEPHALOPATHY
     Route: 048
     Dates: start: 20091028, end: 20091231
  2. TORSEMIDE [Interacting]
     Route: 048
     Dates: start: 20090601
  3. MIRTAZAPINE [Interacting]
     Indication: HASHIMOTO'S ENCEPHALOPATHY
     Route: 048
     Dates: start: 20091028
  4. PANTOZOL [Interacting]
     Indication: REFLUX OESOPHAGITIS
     Dosage: FORM: GASTRO-RESISTANT TABLET
     Route: 048
     Dates: start: 20090601
  5. ACETYLSALICYLIC ACID [Interacting]
     Indication: CORONARY ARTERY DISEASE
     Route: 048
     Dates: start: 20090901
  6. ISCOVER [Interacting]
     Indication: CORONARY ARTERY DISEASE
     Dosage: FORM:FILM COATED TABLET
     Route: 048
     Dates: start: 20090901
  7. ACTRAPID [Concomitant]
     Indication: DIABETES MELLITUS
     Dosage: FORM:INJECTION
     Route: 058
  8. PREDNISOLON [Concomitant]
     Indication: HASHIMOTO'S ENCEPHALOPATHY
     Route: 048
     Dates: start: 20091001
  9. DIGITOXIN [Concomitant]
     Route: 048
     Dates: start: 20090601
  10. KARVEA [Concomitant]
     Dosage: FORM:FILM COATED TABLET
     Route: 048
     Dates: start: 20090601
  11. CALCILAC KT [Concomitant]
     Indication: OSTEOPOROSIS PROPHYLAXIS
     Dosage: FORM: CHEWABLE TABLET
     Route: 048
  12. SPIRONOLACTONE [Concomitant]
     Route: 048

REACTIONS (1)
  - PANCYTOPENIA [None]
